FAERS Safety Report 4375154-6 (Version None)
Quarter: 2004Q2

REPORT INFORMATION
  Report Type: 
  Country: None (occurrence: None)
  Receive Date: 20040603
  Receipt Date: 20040520
  Transmission Date: 20050107
  Serious: Yes (Death)
  Sender: FDA-Public Use
  Company Number: JP-JNJFOC-20040403607

PATIENT
  Age: 55 Year
  Sex: Female

DRUGS (7)
  1. FENTANYL [Suspect]
     Indication: CANCER PAIN
     Dosage: 5 MG, 1 IN 3 DAY, TRANSDERMAL
     Route: 062
     Dates: start: 20040131, end: 20040208
  2. METHYLPREDNISOLONE SODIUM SUCCINATE [Concomitant]
  3. BLOOD SUBSTITUTES (ALL OTHER THERAPEUTIC PRODUCTS) [Concomitant]
  4. METOCLOPRAMIDE [Concomitant]
  5. FLURBIPROFEN AXETIL [Concomitant]
  6. DEXAMETHASONE SODIUM PHOSPHATE [Concomitant]
  7. OTHER CARDIOVASCULAR AGENTS (CARDIOVASCULAR SYSTEM DRUGS) [Concomitant]

REACTIONS (2)
  - CHONDROSARCOMA [None]
  - MALIGNANT NEOPLASM PROGRESSION [None]
